FAERS Safety Report 9349389 (Version 2)
Quarter: 2013Q2

REPORT INFORMATION
  Report Type: Spontaneous
  Country: US (occurrence: US)
  Receive Date: 20130614
  Receipt Date: 20130626
  Transmission Date: 20140414
  Serious: Yes (Hospitalization)
  Sender: FDA-Public Use
  Company Number: US-BAXTER-2013BAX021695

PATIENT
  Age: 66 Year
  Sex: Male

DRUGS (4)
  1. DIANEAL PD2 [Suspect]
     Indication: PERITONEAL DIALYSIS
     Route: 033
     Dates: start: 20050623
  2. DIANEAL PD2 [Suspect]
     Route: 033
  3. DIANEAL PD2 [Suspect]
     Indication: PERITONEAL DIALYSIS
     Route: 033
     Dates: start: 20050623
  4. DIANEAL PD2 [Suspect]
     Route: 033

REACTIONS (2)
  - Asthenia [Recovering/Resolving]
  - Dyspnoea [Recovering/Resolving]
